FAERS Safety Report 6457327-1 (Version None)
Quarter: 2009Q4

REPORT INFORMATION
  Report Type: 
  Country: None (occurrence: None)
  Receive Date: 20091119
  Receipt Date: 20091103
  Transmission Date: 20100525
  Serious: Yes (Hospitalization)
  Sender: FDA-Public Use
  Company Number: 2009SA000952

PATIENT
  Sex: Female

DRUGS (1)
  1. MULTAQ [Suspect]
     Dosage: UNKNOWN; UNKNOWN;UNKNOWN

REACTIONS (1)
  - HOSPITALISATION [None]
